FAERS Safety Report 19745639 (Version 1)
Quarter: 2021Q3

REPORT INFORMATION
  Report Type: Spontaneous
  Country: CA (occurrence: CA)
  Receive Date: 20210825
  Receipt Date: 20210825
  Transmission Date: 20211014
  Serious: Yes (Hospitalization)
  Sender: FDA-Public Use
  Company Number: CA-TEVA-2021-CA-1945070

PATIENT
  Age: 78 Year
  Sex: Female

DRUGS (6)
  1. BRIMONIDINE OPHTHALMIC [Concomitant]
  2. TOLTERODINE [Concomitant]
     Active Substance: TOLTERODINE
  3. LATANOPROST/TIMOLOL [Concomitant]
     Active Substance: LATANOPROST\TIMOLOL
  4. PROPRANOLOL [Concomitant]
     Active Substance: PROPRANOLOL HYDROCHLORIDE
  5. PROPRANOLOL [Suspect]
     Active Substance: PROPRANOLOL HYDROCHLORIDE
     Indication: TREMOR
     Dosage: 40 MILLIGRAM DAILY;
     Route: 048
  6. OMEPRAZOLE. [Concomitant]
     Active Substance: OMEPRAZOLE

REACTIONS (4)
  - Bradycardia [Unknown]
  - Syncope [Unknown]
  - Hypotension [Unknown]
  - Loss of consciousness [Unknown]
